FAERS Safety Report 9645757 (Version 2)
Quarter: 2013Q4

REPORT INFORMATION
  Report Type: Spontaneous
  Country: CA (occurrence: CA)
  Receive Date: 20131025
  Receipt Date: 20131025
  Transmission Date: 20140711
  Serious: Yes (Other)
  Sender: FDA-Public Use
  Company Number: US-ASTRAZENECA-2011SE56218

PATIENT
  Age: 73 Year
  Sex: Female

DRUGS (9)
  1. ARIMIDEX [Suspect]
     Indication: BREAST CANCER
     Route: 048
     Dates: start: 20110914
  2. LORAZEPAM [Concomitant]
     Indication: SLEEP DISORDER
     Route: 048
  3. TRAMADOL AND ACETAMINOPHEN [Concomitant]
     Indication: ARTHRALGIA
     Route: 048
  4. LUTEIN DROPS [Concomitant]
  5. LUTEIN DROPS [Concomitant]
     Route: 048
  6. PARIETT [Concomitant]
  7. TREMASETE [Concomitant]
     Dosage: OCCASIONALLY
  8. ATIVAN [Concomitant]
     Dosage: AS NEEDED
  9. PAIN KILLER [Concomitant]
     Indication: PAIN

REACTIONS (10)
  - Macular degeneration [Unknown]
  - Gastrooesophageal reflux disease [Not Recovered/Not Resolved]
  - Weight decreased [Unknown]
  - Pain in extremity [Unknown]
  - Eye swelling [Unknown]
  - Abdominal pain upper [Unknown]
  - Lacrimation increased [Unknown]
  - Arthritis [Unknown]
  - Arthralgia [Unknown]
  - Arthralgia [Unknown]
